FAERS Safety Report 8620372-1 (Version None)
Quarter: 2012Q3

REPORT INFORMATION
  Report Type: 
  Country: None (occurrence: None)
  Receive Date: 20120824
  Receipt Date: 20120816
  Transmission Date: 20120928
  Serious: Yes (Other)
  Sender: FDA-Public Use
  Company Number: US-GLAXOSMITHKLINE-A0990470A

PATIENT
  Age: 62 Year
  Sex: Female
  Weight: 48.2 kg

DRUGS (1)
  1. TYKERB [Suspect]
     Indication: BREAST CANCER
     Dosage: 1250MG PER DAY
     Route: 048
     Dates: start: 20110101

REACTIONS (3)
  - NAIL DISORDER [None]
  - BLISTER [None]
  - SKIN ATROPHY [None]
